FAERS Safety Report 8282938-0 (Version None)
Quarter: 2012Q2

REPORT INFORMATION
  Report Type: 
  Country: None (occurrence: None)
  Receive Date: 20120413
  Receipt Date: 20120330
  Transmission Date: 20120825
  Serious: Yes (Hospitalization)
  Sender: FDA-Public Use
  Company Number: AR-ROCHE-1056500

PATIENT
  Sex: Female

DRUGS (1)
  1. LUCENTIS [Suspect]
     Indication: RETINAL HAEMORRHAGE
     Dosage: 1 AMPOULE PER MONTH, SHE RECEIVED 3 AMPOULES IN TOTAL, IN MAR 2011, APR 2011 AND MAY 2011.
     Route: 050
     Dates: start: 20110301

REACTIONS (8)
  - ABDOMINAL STRANGULATED HERNIA [None]
  - ABDOMINAL ADHESIONS [None]
  - WOUND TREATMENT [None]
  - INFECTIOUS PERITONITIS [None]
  - COUGH [None]
  - APPENDICEAL ABSCESS [None]
  - LACRIMATION INCREASED [None]
  - DRUG INEFFECTIVE [None]
